FAERS Safety Report 9392240 (Version 1)
Quarter: 2013Q3

REPORT INFORMATION
  Report Type: Spontaneous
  Country: US (occurrence: US)
  Receive Date: 20130710
  Receipt Date: 20130710
  Transmission Date: 20140515
  Serious: Yes (Other)
  Sender: FDA-Public Use
  Company Number: US-AMGEN-USASP2011052597

PATIENT
  Age: 71 Year
  Sex: Female

DRUGS (20)
  1. PROLIA [Suspect]
     Indication: OSTEOPOROSIS
     Dosage: 60 MG, Q6MO
     Dates: start: 201101
  2. PROLIA [Suspect]
     Indication: BONE DISORDER
  3. VITAMIN D                          /00107901/ [Concomitant]
     Dosage: 3 IU, UNK
  4. ASPIRIN [Concomitant]
  5. ATENOLOL [Concomitant]
  6. AMLODIPINE [Concomitant]
  7. DIOVAN [Concomitant]
  8. TRICOR [Concomitant]
  9. ENABLEX [Concomitant]
  10. LEXAPRO [Concomitant]
  11. HYDROCODONE [Concomitant]
  12. BENEFIBER [Concomitant]
  13. DULCOLAX [Concomitant]
  14. CENTRUM SILVER [Concomitant]
  15. NEXIUM [Concomitant]
  16. TRAZODONE [Concomitant]
  17. FUROSEMIDE [Concomitant]
  18. MOBIC [Concomitant]
  19. OSCAL 500 + D [Concomitant]
  20. CALCIUM [Concomitant]

REACTIONS (7)
  - Scoliosis [Unknown]
  - Femur fracture [Unknown]
  - Bone fragmentation [Unknown]
  - Procedural complication [Unknown]
  - Fall [Unknown]
  - Pain in extremity [Unknown]
  - Localised infection [Recovering/Resolving]
